FAERS Safety Report 5729040-7 (Version None)
Quarter: 2008Q2

REPORT INFORMATION
  Report Type: 
  Country: None (occurrence: None)
  Receive Date: 20080505
  Receipt Date: 20080505
  Transmission Date: 20081010
  Serious: No
  Sender: FDA-Public Use
  Company Number: None

PATIENT
  Age: 80 Year
  Sex: Female
  Weight: 77.1115 kg

DRUGS (6)
  1. VICODIN [Suspect]
     Indication: OSTEOPOROSIS
     Dosage: 1  2 A DAY MOUTH
     Route: 048
  2. VICODIN [Suspect]
     Indication: PAIN
     Dosage: 1  2 A DAY MOUTH
     Route: 048
  3. BONIVA [Suspect]
     Indication: BONE DISORDER
     Dosage: 1  MO.  MOUTH
     Route: 048
  4. LIPITOR [Concomitant]
  5. POTASSIUM CHLORIDE [Concomitant]
  6. FUROSEMIDE [Concomitant]

REACTIONS (6)
  - ANOREXIA [None]
  - ASTHENIA [None]
  - BOWEL MOVEMENT IRREGULARITY [None]
  - CHOKING [None]
  - DIARRHOEA [None]
  - NAUSEA [None]
